FAERS Safety Report 5428698-X (Version None)
Quarter: 2007Q3

REPORT INFORMATION
  Report Type: 
  Country: None (occurrence: None)
  Receive Date: 20070828
  Receipt Date: 20070820
  Transmission Date: 20080115
  Serious: Yes (Other)
  Sender: FDA-Public Use
  Company Number: US-SHR-US-2007-031366

PATIENT
  Age: 36 Year
  Sex: Female
  Weight: 56 kg

DRUGS (1)
  1. MIRENA [Suspect]
     Indication: CONTRACEPTION
     Dosage: 20 A?G/DAY, CONT
     Route: 015
     Dates: start: 20070808, end: 20070820

REACTIONS (5)
  - ABASIA [None]
  - ABDOMINAL PAIN LOWER [None]
  - ADNEXA UTERI PAIN [None]
  - BACK PAIN [None]
  - HEADACHE [None]
